FAERS Safety Report 15288629 (Version 5)
Quarter: 2019Q1

REPORT INFORMATION
  Report Type: Report from Study
  Country: JP (occurrence: JP)
  Receive Date: 20180817
  Receipt Date: 20190208
  Transmission Date: 20190417
  Serious: Yes (Death, Other)
  Sender: FDA-Public Use
  Company Number: JP-B.I. PHARMACEUTICALS,INC./RIDGEFIELD-2018-NB-004495

PATIENT
  Age: 74 Year
  Sex: Female
  Weight: 56.9 kg

DRUGS (1)
  1. PRAZAXA [Suspect]
     Active Substance: DABIGATRAN ETEXILATE MESYLATE
     Indication: ATRIAL FIBRILLATION
     Route: 048
     Dates: start: 20140726, end: 20180816

REACTIONS (4)
  - Cerebral infarction [Fatal]
  - Brain herniation [Fatal]
  - Subarachnoid haemorrhage [Unknown]
  - Aneurysm ruptured [Unknown]

NARRATIVE: CASE EVENT DATE: 20180816
